FAERS Safety Report 7572753-5 (Version None)
Quarter: 2011Q2

REPORT INFORMATION
  Report Type: 
  Country: None (occurrence: None)
  Receive Date: 20110620
  Receipt Date: 20110607
  Transmission Date: 20111010
  Serious: Yes (Hospitalization)
  Sender: FDA-Public Use
  Company Number: DSJ-2011-11405

PATIENT
  Age: 29 Year
  Sex: Female

DRUGS (2)
  1. POLYVITMAIN (VITAMIN NOS) [Concomitant]
  2. BENICAR HCT [Suspect]
     Indication: HYPERTENSION
     Dosage: 40/12.5  MGT (1 IN 1 D), PER ORAL
     Route: 048
     Dates: start: 20080101

REACTIONS (2)
  - OBESITY SURGERY [None]
  - HYPOTENSION [None]
